FAERS Safety Report 9342390 (Version 1)
Quarter: 2013Q2

REPORT INFORMATION
  Report Type: Spontaneous
  Country: US (occurrence: US)
  Receive Date: 20130611
  Receipt Date: 20130611
  Transmission Date: 20140414
  Serious: Yes (Other)
  Sender: FDA-Public Use
  Company Number: US-UCBSA-087628

PATIENT
  Age: 51 Year
  Sex: Female

DRUGS (1)
  1. VIMPAT [Suspect]
     Indication: CONVULSION PROPHYLAXIS

REACTIONS (1)
  - Grand mal convulsion [Unknown]
